FAERS Safety Report 5757872-8 (Version None)
Quarter: 2008Q2

REPORT INFORMATION
  Report Type: 
  Country: None (occurrence: None)
  Receive Date: 20080604
  Receipt Date: 20080529
  Transmission Date: 20081010
  Serious: Yes (Other)
  Sender: FDA-Public Use
  Company Number: GB-RANBAXY-2008RR-15536

PATIENT

DRUGS (2)
  1. SIMVASTATIN [Suspect]
     Dosage: 40 MG, UNK
     Dates: start: 20080310
  2. CANDESARTAN CILEXETIL [Concomitant]

REACTIONS (1)
  - CONTUSION [None]
